FAERS Safety Report 21534071 (Version 1)
Quarter: 2022Q4

REPORT INFORMATION
  Report Type: Spontaneous
  Country: US (occurrence: US)
  Receive Date: 20221101
  Receipt Date: 20221101
  Transmission Date: 20230112
  Serious: No
  Sender: FDA-Public Use
  Company Number: US-PARATEK PHARMACEUTICALS, INC.-2022PTK00076

PATIENT
  Age: 68 Year
  Sex: Female

DRUGS (3)
  1. NUZYRA [Suspect]
     Active Substance: OMADACYCLINE
     Indication: Skin ulcer
     Dosage: 450 MG, 1X/DAY
     Route: 048
     Dates: start: 20220305, end: 20220306
  2. NUZYRA [Suspect]
     Active Substance: OMADACYCLINE
     Dosage: 300 MG, 1X/DAY
     Route: 048
     Dates: start: 20220307
  3. UNSPECIFIED INGREDIENT [Concomitant]
     Active Substance: UNSPECIFIED INGREDIENT

REACTIONS (2)
  - Blood glucose increased [Not Recovered/Not Resolved]
  - Off label use [Not Recovered/Not Resolved]

NARRATIVE: CASE EVENT DATE: 20220301
